FAERS Safety Report 17477901 (Version 1)
Quarter: 2020Q1

REPORT INFORMATION
  Report Type: Report from Study
  Country: US (occurrence: US)
  Receive Date: 20200228
  Receipt Date: 20200228
  Transmission Date: 20200409
  Serious: Yes (Death, Hospitalization)
  Sender: FDA-Public Use
  Company Number: US-PFIZER INC-2020082798

PATIENT
  Age: 68 Year
  Sex: Male
  Weight: 79.7 kg

DRUGS (2)
  1. AXITINIB [Suspect]
     Active Substance: AXITINIB
     Indication: ADENOID CYSTIC CARCINOMA
     Dosage: 5 MG, BID
     Dates: start: 20190827
  2. AVELUMAB [Suspect]
     Active Substance: AVELUMAB
     Indication: ADENOID CYSTIC CARCINOMA
     Dosage: 10 MG, BIWEEKY
     Dates: start: 20190827, end: 20190913

REACTIONS (3)
  - Dyspnoea [Not Recovered/Not Resolved]
  - Dehydration [Not Recovered/Not Resolved]
  - Death [Fatal]

NARRATIVE: CASE EVENT DATE: 20200220
